FAERS Safety Report 11211278 (Version 1)
Quarter: 2015Q2

REPORT INFORMATION
  Report Type: Report from Study
  Country: US (occurrence: US)
  Receive Date: 20150623
  Receipt Date: 20150623
  Transmission Date: 20150821
  Serious: Yes (Hospitalization)
  Sender: FDA-Public Use
  Company Number: US-ABBVIE-15K-163-1411189-00

PATIENT
  Sex: Male

DRUGS (15)
  1. VITAMIN D2 [Concomitant]
     Active Substance: ERGOCALCIFEROL
     Indication: PRODUCT USED FOR UNKNOWN INDICATION
     Route: 048
  2. XYLOCAINE-MPF [Concomitant]
     Active Substance: LIDOCAINE HYDROCHLORIDE
     Indication: PRODUCT USED FOR UNKNOWN INDICATION
     Dosage: 1%
     Route: 058
  3. VENTOLIN HFA [Concomitant]
     Active Substance: ALBUTEROL SULFATE
     Indication: DYSPNOEA
  4. HYDROXYUREA. [Suspect]
     Active Substance: HYDROXYUREA
     Indication: PRODUCT USED FOR UNKNOWN INDICATION
     Route: 065
  5. ACTIGALL [Concomitant]
     Active Substance: URSODIOL
     Indication: PRODUCT USED FOR UNKNOWN INDICATION
     Route: 048
  6. HUMIRA [Suspect]
     Active Substance: ADALIMUMAB
     Indication: PRODUCT USED FOR UNKNOWN INDICATION
     Route: 065
  7. FLAGYL [Concomitant]
     Active Substance: METRONIDAZOLE\METRONIDAZOLE HYDROCHLORIDE
     Indication: PRODUCT USED FOR UNKNOWN INDICATION
     Route: 048
  8. FOLVITE [Concomitant]
     Active Substance: FOLIC ACID
     Indication: PRODUCT USED FOR UNKNOWN INDICATION
     Route: 048
  9. DELTASONE [Concomitant]
     Active Substance: PREDNISONE
     Indication: PRODUCT USED FOR UNKNOWN INDICATION
     Route: 048
  10. CHILDREN^S MULTI-VIT GUMMIES [Concomitant]
     Indication: PRODUCT USED FOR UNKNOWN INDICATION
     Dosage: CHEW
  11. VENTOLIN HFA [Concomitant]
     Active Substance: ALBUTEROL SULFATE
     Indication: WHEEZING
     Dosage: INTO THE LUNGS EVERY FOUR HOURS
  12. METHOTREXATE [Suspect]
     Active Substance: METHOTREXATE
     Indication: PRODUCT USED FOR UNKNOWN INDICATION
     Route: 065
  13. PERIACTIN [Concomitant]
     Active Substance: CYPROHEPTADINE HYDROCHLORIDE
     Indication: PRODUCT USED FOR UNKNOWN INDICATION
     Route: 048
  14. FLUORIDE [Concomitant]
     Active Substance: SODIUM FLUORIDE
     Indication: SUPPLEMENTATION THERAPY
     Dosage: LACTOSE-REDUCED LIQUID
     Route: 048
  15. LMX [Concomitant]
     Active Substance: LIDOCAINE
     Indication: PRODUCT USED FOR UNKNOWN INDICATION
     Dosage: APPLY 30 MINUTES BEFORE HUMIRA
     Route: 061

REACTIONS (10)
  - Reticulocyte count increased [Unknown]
  - Bone marrow failure [Recovered/Resolved]
  - Gastrointestinal haemorrhage [Recovered/Resolved]
  - Platelet count increased [Unknown]
  - Macrocytosis [Unknown]
  - Anisocytosis [Unknown]
  - Haematochezia [Unknown]
  - Anaemia [Recovered/Resolved]
  - Red blood cell sedimentation rate increased [Unknown]
  - Tachycardia [Unknown]

NARRATIVE: CASE EVENT DATE: 201504
